FAERS Safety Report 4509859-0 (Version None)
Quarter: 2004Q4

REPORT INFORMATION
  Report Type: 
  Country: None (occurrence: None)
  Receive Date: 20041119
  Receipt Date: 20041102
  Transmission Date: 20050328
  Serious: Yes (Other)
  Sender: FDA-Public Use
  Company Number: USA041183255

PATIENT
  Age: 56 Year
  Sex: Female

DRUGS (1)
  1. EVISTA [Suspect]
     Indication: BONE DISORDER
     Dates: start: 19970101

REACTIONS (1)
  - ENDOMETRIAL CANCER [None]
